FAERS Safety Report 9505903 (Version 1)
Quarter: 2013Q1

REPORT INFORMATION
  Report Type: Spontaneous
  Country: US (occurrence: None)
  Receive Date: 20130219
  Receipt Date: 20130219
  Transmission Date: 20140127
  Serious: Yes (Other)
  Sender: FDA-Public Use
  Company Number: 074355

PATIENT
  Age: 56 Year
  Sex: Female

DRUGS (1)
  1. LACOSAMIDE [Suspect]
     Indication: EPILEPSY
     Dosage: 100 MG Q AM AND 100 Q PM
     Dates: start: 2011

REACTIONS (4)
  - Grand mal convulsion [None]
  - Somnolence [None]
  - Amnesia [None]
  - Mouth injury [None]
